FAERS Safety Report 9264110 (Version 1)
Quarter: 2013Q2

REPORT INFORMATION
  Report Type: Spontaneous
  Country: US (occurrence: US)
  Receive Date: 20130430
  Receipt Date: 20130430
  Transmission Date: 20140414
  Serious: No
  Sender: FDA-Public Use
  Company Number: US-009507513-1304USA017681

PATIENT
  Age: 3 Year
  Sex: Female

DRUGS (2)
  1. CLARITIN ORAL SOLUTION [Suspect]
     Indication: SEASONAL ALLERGY
     Dosage: 5 MG, QD
     Route: 048
  2. CLARITIN ORAL SOLUTION [Suspect]
     Dosage: 5 MG, BID
     Route: 048
     Dates: start: 20130419

REACTIONS (1)
  - Overdose [Unknown]
